FAERS Safety Report 6299262-8 (Version None)
Quarter: 2009Q3

REPORT INFORMATION
  Report Type: 
  Country: None (occurrence: None)
  Receive Date: 20090806
  Receipt Date: 20090727
  Transmission Date: 20100115
  Serious: Yes (Other)
  Sender: FDA-Public Use
  Company Number: US-BAXTER-2009BH012305

PATIENT
  Sex: Male

DRUGS (2)
  1. IGIV, UNSPECIFIED PRODUCT [Suspect]
     Indication: MULTIFOCAL MOTOR NEUROPATHY
     Route: 042
  2. IGIV, UNSPECIFIED PRODUCT [Suspect]
     Indication: OFF LABEL USE
     Route: 042

REACTIONS (1)
  - TRANSIENT ISCHAEMIC ATTACK [None]
